FAERS Safety Report 10205102 (Version 5)
Quarter: 2014Q3

REPORT INFORMATION
  Report Type: Spontaneous
  Country: IL (occurrence: IL)
  Receive Date: 20140529
  Receipt Date: 20140724
  Transmission Date: 20150326
  Serious: Yes (Hospitalization, Other)
  Sender: FDA-Public Use
  Company Number: IL-PFIZER INC-2014088084

PATIENT
  Age: 79 Year
  Sex: Male

DRUGS (7)
  1. BEZAFIBRATE [Concomitant]
     Active Substance: BEZAFIBRATE
  2. DUODART [Concomitant]
     Active Substance: DUTASTERIDE\TAMSULOSIN
  3. CLOPIDEXEL [Concomitant]
  4. XANAX [Concomitant]
     Active Substance: ALPRAZOLAM
  5. ALLORIL [Concomitant]
  6. SUTENT [Suspect]
     Active Substance: SUNITINIB MALATE
     Indication: RENAL CELL CARCINOMA
     Dosage: 50 MG, 1X/DAY, CYCLIC
     Route: 048
     Dates: start: 20140304, end: 20140525
  7. STATOR [Concomitant]

REACTIONS (21)
  - Yellow skin [Recovering/Resolving]
  - Swelling face [Recovering/Resolving]
  - Decreased appetite [Recovering/Resolving]
  - Blood thyroid stimulating hormone increased [Not Recovered/Not Resolved]
  - Weight decreased [Unknown]
  - Dry mouth [Recovering/Resolving]
  - Oral discomfort [Not Recovered/Not Resolved]
  - Glossodynia [Not Recovered/Not Resolved]
  - Somnolence [Recovering/Resolving]
  - Lip dry [Recovering/Resolving]
  - Oedema peripheral [Unknown]
  - Hepatic function abnormal [Recovering/Resolving]
  - Dehydration [Not Recovered/Not Resolved]
  - Fatigue [Recovering/Resolving]
  - Pain in extremity [Unknown]
  - Renal impairment [Recovering/Resolving]
  - Fall [Unknown]
  - Platelet count decreased [Not Recovered/Not Resolved]
  - Tongue discolouration [Not Recovered/Not Resolved]
  - Asthenia [Recovering/Resolving]
  - Pain in extremity [Not Recovered/Not Resolved]

NARRATIVE: CASE EVENT DATE: 2014
